FAERS Safety Report 8439803-5 (Version None)
Quarter: 2012Q2

REPORT INFORMATION
  Report Type: 
  Country: None (occurrence: None)
  Receive Date: 20120615
  Receipt Date: 20120531
  Transmission Date: 20120825
  Serious: Yes (Death, Life-Threatening)
  Sender: FDA-Public Use
  Company Number: JP-ASTRAZENECA-2012SE32377

PATIENT
  Age: 12 Year
  Sex: Male

DRUGS (9)
  1. DESMOPRESSIN ACETATE [Suspect]
     Indication: HYPERNATRAEMIA
     Route: 065
  2. MEROPENEM [Suspect]
     Route: 042
     Dates: start: 20120330, end: 20120412
  3. VANCOMYCIN HYDROCHLORIDE [Suspect]
     Route: 065
     Dates: start: 20120212, end: 20120302
  4. MEROPENEM [Suspect]
     Indication: FEBRILE NEUTROPENIA
     Route: 042
     Dates: start: 20120206, end: 20120227
  5. VANCOMYCIN HYDROCHLORIDE [Suspect]
     Route: 065
     Dates: start: 20120314, end: 20120322
  6. VANCOMYCIN HYDROCHLORIDE [Suspect]
     Route: 065
     Dates: start: 20120405, end: 20120412
  7. MAXIPIME [Concomitant]
     Dates: start: 20120130, end: 20120206
  8. MICAFUNGIN SODIUM [Concomitant]
     Dates: start: 20120320
  9. MEROPENEM [Suspect]
     Route: 042
     Dates: start: 20120314, end: 20120324

REACTIONS (4)
  - HYPONATRAEMIA [None]
  - HYPERNATRAEMIA [None]
  - EOSINOPHILIA [None]
  - BLOOD PRESSURE DECREASED [None]
